FAERS Safety Report 10975367 (Version 1)
Quarter: 2015Q1

REPORT INFORMATION
  Report Type: Spontaneous
  Country: US (occurrence: None)
  Receive Date: 20150226
  Receipt Date: 20150226
  Transmission Date: 20150721
  Serious: No
  Sender: FDA-Public Use
  Company Number: TPA2009A01783

PATIENT
  Age: 92 Year
  Sex: Female
  Weight: 50.8 kg

DRUGS (15)
  1. LANOXIN [Concomitant]
     Active Substance: DIGOXIN
  2. LASIX [Concomitant]
     Active Substance: FUROSEMIDE
  3. ASTHMANEX INHALER (ALL OTHER THERAPEUTIC PRODUCTS) [Concomitant]
  4. SIMVASTATIN. [Concomitant]
     Active Substance: SIMVASTATIN
  5. COZAAR (LOSARTAN POTASSIUM) [Concomitant]
  6. COUMADIN [Concomitant]
     Active Substance: WARFARIN SODIUM
  7. FOLIC ACID. [Concomitant]
     Active Substance: FOLIC ACID
  8. NEXIUM [Concomitant]
     Active Substance: ESOMEPRAZOLE MAGNESIUM
  9. XYZAL (LEVOCETIRIZINE DIHYDROCHLORIDE) [Concomitant]
  10. VIRAMIST (ALL OTHER THERAPEUTIC PRODUCTS) [Concomitant]
  11. ULORIC [Suspect]
     Active Substance: FEBUXOSTAT
     Indication: GOUT
     Route: 048
     Dates: start: 20090605, end: 20090623
  12. POTASSIUM [Concomitant]
     Active Substance: POTASSIUM
  13. ATENOLOL. [Concomitant]
     Active Substance: ATENOLOL
  14. SYNTHROID [Concomitant]
     Active Substance: LEVOTHYROXINE SODIUM
  15. SINGULAIR (MONTELUKAST) [Concomitant]

REACTIONS (2)
  - Weight decreased [None]
  - Diarrhoea [None]

NARRATIVE: CASE EVENT DATE: 200906
